FAERS Safety Report 8269356-6 (Version None)
Quarter: 2012Q2

REPORT INFORMATION
  Report Type: 
  Country: None (occurrence: None)
  Receive Date: 20120409
  Receipt Date: 20120325
  Transmission Date: 20120825
  Serious: Yes (Hospitalization)
  Sender: FDA-Public Use
  Company Number: US-B.I. PHARMACEUTICALS,INC./RIDGEFIELD-2012-BP-06553BP

PATIENT
  Sex: Female

DRUGS (12)
  1. SERTRALINE HYDROCHLORIDE [Concomitant]
     Dosage: 75 MG
     Route: 048
  2. TORSEMIDE [Concomitant]
     Dosage: 40 MG
     Route: 048
  3. DIGOXIN [Concomitant]
     Dosage: 0.125 MCG
     Route: 048
  4. ARICEPT [Concomitant]
     Indication: DEMENTIA
     Dosage: 23 MG
     Route: 048
     Dates: start: 20120318
  5. DIGOXIN [Concomitant]
     Dosage: 0.125 MG
     Route: 048
  6. CARVEDILOL [Concomitant]
     Dosage: 50 MG
     Route: 048
  7. PRADAXA [Suspect]
     Indication: ATRIAL FIBRILLATION
     Dosage: 150 MG
     Route: 048
     Dates: start: 20111001
  8. LISINOPRIL [Concomitant]
     Indication: HYPERTENSION
     Dosage: 5 MG
     Route: 048
  9. IRON [Concomitant]
     Route: 048
  10. DILTIAZEM [Concomitant]
     Dosage: 180 MG
     Route: 048
  11. KLOR-CON [Concomitant]
     Dosage: 20 MG
     Route: 048
  12. ALLOPURINOL [Concomitant]
     Indication: GOUT
     Route: 048

REACTIONS (1)
  - DYSPNOEA [None]
